FAERS Safety Report 21901087 (Version 2)
Quarter: 2023Q1

REPORT INFORMATION
  Report Type: Spontaneous
  Country: US (occurrence: None)
  Receive Date: 20230123
  Receipt Date: 20230220
  Transmission Date: 20230417
  Serious: No
  Sender: FDA-Public Use
  Company Number: 2023A010257

PATIENT
  Age: 64 Year
  Sex: Male

DRUGS (1)
  1. BYDUREON BCISE [Suspect]
     Active Substance: EXENATIDE
     Indication: Blood glucose abnormal
     Route: 058
     Dates: start: 20201001

REACTIONS (4)
  - Incorrect dose administered by device [Unknown]
  - Intentional device use issue [Unknown]
  - Product use issue [Unknown]
  - Drug delivery system malfunction [Unknown]
